FAERS Safety Report 7392220-1 (Version None)
Quarter: 2011Q2

REPORT INFORMATION
  Report Type: 
  Country: None (occurrence: None)
  Receive Date: 20110404
  Receipt Date: 20110323
  Transmission Date: 20111010
  Serious: Yes (Death, Life-Threatening, Hospitalization)
  Sender: FDA-Public Use
  Company Number: Z0008616A

PATIENT
  Age: 76 Year
  Sex: Female

DRUGS (1)
  1. ELTROMBOPAG [Suspect]
     Indication: THROMBOCYTOPENIA
     Route: 048
     Dates: start: 20110310

REACTIONS (2)
  - DISEASE PROGRESSION [None]
  - SUBCUTANEOUS HAEMATOMA [None]
